FAERS Safety Report 8020260-8 (Version None)
Quarter: 2011Q4

REPORT INFORMATION
  Report Type: 
  Country: None (occurrence: None)
  Receive Date: 20111228
  Receipt Date: 20111216
  Transmission Date: 20120403
  Serious: Yes (Other)
  Sender: FDA-Public Use
  Company Number: AUR-APL-2011-06231

PATIENT
  Age: 35 Year
  Sex: Female

DRUGS (5)
  1. CLOBAZAM (CLOBAZAM) [Suspect]
     Indication: CONVULSION
     Dosage: 10 MG (10 MG, 1 IN 1 D)
  2. VIMPAT [Suspect]
     Indication: CONVULSION
     Dosage: 100 MG (50 MG, 2 IN 1 D)
  3. KEPPRA [Suspect]
     Indication: CONVULSION
     Dosage: 3000 MG (1500 MG, 2 IN 1 D)
  4. CARBAMAZEPINE [Suspect]
     Indication: CONVULSION
     Dosage: 400 MG (200 MG, 2 IN 1 D)
  5. TOPIRAMATE [Suspect]
     Indication: CONVULSION

REACTIONS (13)
  - AURA [None]
  - DRUG RESISTANCE [None]
  - CONVULSION [None]
  - DIPLOPIA [None]
  - FATIGUE [None]
  - SLOW SPEECH [None]
  - MEMORY IMPAIRMENT [None]
  - STEVENS-JOHNSON SYNDROME [None]
  - TEARFULNESS [None]
  - URINARY INCONTINENCE [None]
  - MARITAL PROBLEM [None]
  - ANXIETY [None]
  - SELF ESTEEM DECREASED [None]
